FAERS Safety Report 8425477-6 (Version None)
Quarter: 2012Q2

REPORT INFORMATION
  Report Type: 
  Country: None (occurrence: None)
  Receive Date: 20120605
  Receipt Date: 20120419
  Transmission Date: 20120825
  Serious: Yes (Hospitalization, Other)
  Sender: FDA-Public Use
  Company Number: ADR-2012-01011

PATIENT
  Age: 51 Year
  Sex: Male

DRUGS (1)
  1. BACLOFEN [Suspect]
     Indication: MUSCLE SPASTICITY
     Dosage: 68.8 MCG/DAY, SEE B5

REACTIONS (12)
  - INFLUENZA [None]
  - POSTOPERATIVE ILEUS [None]
  - MALAISE [None]
  - DEVICE DISLOCATION [None]
  - NERVE COMPRESSION [None]
  - MUSCLE SPASTICITY [None]
  - CONDITION AGGRAVATED [None]
  - MUSCULOSKELETAL PAIN [None]
  - URINARY TRACT INFECTION [None]
  - EXCESSIVE EXERCISE [None]
  - VOMITING [None]
  - MUSCULAR WEAKNESS [None]
